FAERS Safety Report 6397765-9 (Version None)
Quarter: 2009Q4

REPORT INFORMATION
  Report Type: 
  Country: None (occurrence: None)
  Receive Date: 20091012
  Receipt Date: 20091005
  Transmission Date: 20100525
  Serious: Yes (Other)
  Sender: FDA-Public Use
  Company Number: US-AMGEN-QUU367508

PATIENT
  Sex: Female

DRUGS (1)
  1. EPOGEN [Suspect]
     Indication: DIALYSIS
     Route: 058
     Dates: start: 20090601

REACTIONS (2)
  - THERAPEUTIC RESPONSE DECREASED [None]
  - TRANSPLANT REJECTION [None]
